FAERS Safety Report 14847176 (Version 1)
Quarter: 2018Q2

REPORT INFORMATION
  Report Type: Spontaneous
  Country: GU (occurrence: GU)
  Receive Date: 20180419
  Receipt Date: 20180419
  Transmission Date: 20180711
  Serious: No
  Sender: FDA-Public Use
  Company Number: None

PATIENT
  Age: 56 Year
  Sex: Female
  Weight: 64.8 kg

DRUGS (2)
  1. LISINOPRIL 5 MG [Concomitant]
     Active Substance: LISINOPRIL
     Dates: start: 20180227
  2. DILTIAZEM. [Suspect]
     Active Substance: DILTIAZEM
     Indication: ESSENTIAL HYPERTENSION
     Route: 048
     Dates: start: 20180329, end: 20180418

REACTIONS (8)
  - Passive smoking [None]
  - Affective disorder [None]
  - Dry mouth [None]
  - Therapy change [None]
  - Depression [None]
  - Anger [None]
  - Suicidal ideation [None]
  - Irritability [None]

NARRATIVE: CASE EVENT DATE: 20180329
